FAERS Safety Report 20144580 (Version 2)
Quarter: 2021Q4

REPORT INFORMATION
  Report Type: Spontaneous
  Country: JP (occurrence: JP)
  Receive Date: 20211203
  Receipt Date: 20211214
  Transmission Date: 20220303
  Serious: No
  Sender: FDA-Public Use
  Company Number: JP-GSKNCCC-Case-01364863_AE-52341

PATIENT
  Age: 61 Year
  Sex: Female

DRUGS (2)
  1. LAMICTAL [Suspect]
     Active Substance: LAMOTRIGINE
     Dosage: 25 MG, BID
  2. LAMICTAL [Suspect]
     Active Substance: LAMOTRIGINE
     Dosage: 12 MG, QID

REACTIONS (4)
  - Hyperhidrosis [Unknown]
  - Increased appetite [Unknown]
  - Product use issue [Unknown]
  - Off label use [Unknown]
